FAERS Safety Report 4628599-0 (Version None)
Quarter: 2005Q2

REPORT INFORMATION
  Report Type: 
  Country: None (occurrence: None)
  Receive Date: 20050404
  Receipt Date: 20050318
  Transmission Date: 20051028
  Serious: Yes (Disabling)
  Sender: FDA-Public Use
  Company Number: 10662

PATIENT
  Age: 57 Year
  Sex: Female

DRUGS (2)
  1. MORPHINE [Suspect]
     Indication: BACK PAIN
     Dosage: 60 MG PO
     Route: 048
     Dates: start: 20030101, end: 20050211
  2. DEXTROPROPOXYPHENE [Concomitant]

REACTIONS (4)
  - BONE PAIN [None]
  - METASTASES TO BONE [None]
  - PAIN [None]
  - PAIN IN EXTREMITY [None]
